FAERS Safety Report 13269324 (Version 4)
Quarter: 2019Q2

REPORT INFORMATION
  Report Type: Spontaneous
  Country: US (occurrence: US)
  Receive Date: 20170224
  Receipt Date: 20190417
  Transmission Date: 20190711
  Serious: No
  Sender: FDA-Public Use
  Company Number: US-ASTRAZENECA-2017SE17684

PATIENT
  Sex: Female
  Weight: 90.7 kg

DRUGS (2)
  1. BYDUREON [Suspect]
     Active Substance: EXENATIDE
     Indication: DIABETES MELLITUS
     Route: 065
  2. BYDUREON BCISE [Suspect]
     Active Substance: EXENATIDE
     Route: 058
     Dates: start: 20190306

REACTIONS (16)
  - Injection site haemorrhage [Unknown]
  - Product label issue [Unknown]
  - Product label confusion [Unknown]
  - Neuralgia [Unknown]
  - Frustration tolerance decreased [Unknown]
  - Device difficult to use [Unknown]
  - Insurance issue [Unknown]
  - Incorrect dose administered [Unknown]
  - Neuropathy peripheral [Unknown]
  - Therapy cessation [Unknown]
  - Intentional product misuse [Unknown]
  - Circumstance or information capable of leading to medication error [Unknown]
  - Product dose omission [Unknown]
  - Injection site extravasation [Unknown]
  - Pain in extremity [Unknown]
  - Blood glucose abnormal [Unknown]
